FAERS Safety Report 7536124-X (Version None)
Quarter: 2011Q2

REPORT INFORMATION
  Report Type: 
  Country: None (occurrence: None)
  Receive Date: 20110609
  Receipt Date: 20110601
  Transmission Date: 20111010
  Serious: Yes (Hospitalization, Other)
  Sender: FDA-Public Use
  Company Number: US-US-EMD SERONO, INC.-7062842

PATIENT
  Sex: Female
  Weight: 68 kg

DRUGS (5)
  1. LIPODINE [Concomitant]
     Indication: HYPERTENSION
  2. REBIF [Suspect]
     Indication: MULTIPLE SCLEROSIS
     Route: 058
     Dates: start: 20050821, end: 20110501
  3. SYNTHROID [Concomitant]
     Indication: HYPOTHYROIDISM
  4. LIPITOR [Concomitant]
     Indication: BLOOD CHOLESTEROL INCREASED
  5. LEXAPRO [Concomitant]
     Indication: FEELING ABNORMAL

REACTIONS (3)
  - OBSTRUCTION GASTRIC [None]
  - PEPTIC ULCER [None]
  - POST GASTRIC SURGERY SYNDROME [None]
